FAERS Safety Report 9167330 (Version 2)
Quarter: 2013Q2

REPORT INFORMATION
  Report Type: Spontaneous
  Country: US (occurrence: None)
  Receive Date: 20130305
  Receipt Date: 20130423
  Transmission Date: 20140414
  Serious: Yes (Other)
  Sender: FDA-Public Use
  Company Number: ADR-2013-00334

PATIENT
  Sex: Male
  Weight: 23.59 kg

DRUGS (1)
  1. BACLOFEN [Suspect]

REACTIONS (9)
  - Underdose [None]
  - Drug withdrawal syndrome [None]
  - Device malfunction [None]
  - Device power source issue [None]
  - Abnormal behaviour [None]
  - Malaise [None]
  - Muscle spasticity [None]
  - Restlessness [None]
  - Device physical property issue [None]
